FAERS Safety Report 6532922-X (Version None)
Quarter: 2010Q1

REPORT INFORMATION
  Report Type: 
  Country: None (occurrence: None)
  Receive Date: 20100111
  Receipt Date: 20091229
  Transmission Date: 20100710
  Serious: Yes (Hospitalization)
  Sender: FDA-Public Use
  Company Number: CZ-AMGEN-US362112

PATIENT
  Age: 46 Year
  Sex: Male

DRUGS (2)
  1. ENBREL [Suspect]
     Indication: ANKYLOSING SPONDYLITIS
     Dosage: UNKNOWN
     Route: 058
     Dates: start: 20090722, end: 20090722
  2. PREDNISOLONE [Concomitant]
     Route: 048

REACTIONS (9)
  - ABSCESS [None]
  - ERYTHEMA [None]
  - GASTROINTESTINAL NECROSIS [None]
  - GUILLAIN-BARRE SYNDROME [None]
  - INTESTINAL PERFORATION [None]
  - PERITONITIS [None]
  - QUADRIPARESIS [None]
  - RHABDOMYOLYSIS [None]
  - SEPSIS [None]
